FAERS Safety Report 23452531 (Version 1)
Quarter: 2024Q1

REPORT INFORMATION
  Report Type: Spontaneous
  Country: US (occurrence: None)
  Receive Date: 20240129
  Receipt Date: 20240129
  Transmission Date: 20240409
  Serious: Yes (Hospitalization)
  Sender: FDA-Public Use
  Company Number: None

PATIENT
  Age: 56 Year
  Sex: Female
  Weight: 77.8 kg

DRUGS (1)
  1. QULIPTA [Suspect]
     Active Substance: ATOGEPANT
     Dosage: FREQUENCY : DAILY;?
     Route: 048
     Dates: start: 20231109, end: 20240109

REACTIONS (2)
  - Drug eruption [None]
  - Hypertransaminasaemia [None]

NARRATIVE: CASE EVENT DATE: 20240109
